FAERS Safety Report 12158895 (Version 1)
Quarter: 2016Q1

REPORT INFORMATION
  Report Type: Spontaneous
  Country: US (occurrence: US)
  Receive Date: 20160308
  Receipt Date: 20160308
  Transmission Date: 20160526
  Serious: No
  Sender: FDA-Public Use
  Company Number: US-JNJFOC-20160202652

PATIENT
  Age: 80 Year
  Sex: Male
  Weight: 106.6 kg

DRUGS (2)
  1. PRECISE ES PAIN RELIEVING CREAM [Concomitant]
     Indication: MUSCULOSKELETAL PAIN
     Dosage: APPLIED 1/2- 3/4 OF THE CREAM
     Route: 061
  2. TYLENOL EXTRA STRENGTH [Suspect]
     Active Substance: ACETAMINOPHEN
     Indication: ANALGESIC THERAPY
     Route: 048
     Dates: start: 20151219

REACTIONS (2)
  - Drug prescribing error [Unknown]
  - Contraindicated drug administered [Unknown]
